FAERS Safety Report 4292600-7 (Version None)
Quarter: 2004Q1

REPORT INFORMATION
  Report Type: 
  Country: None (occurrence: None)
  Receive Date: 20040126
  Receipt Date: 20031112
  Transmission Date: 20041129
  Serious: No
  Sender: FDA-Public Use
  Company Number: USA031152497

PATIENT
  Age: 64 Year
  Sex: Female

DRUGS (4)
  1. FORTEO [Suspect]
     Indication: OSTEOPOROSIS
     Dosage: 20 UG/DAY
     Dates: start: 20031111
  2. PREDNISONE [Concomitant]
  3. FIORICET [Concomitant]
  4. MS CONTIN [Concomitant]

REACTIONS (4)
  - DIZZINESS [None]
  - EYE PRURITUS [None]
  - NAUSEA [None]
  - URTICARIA [None]
